FAERS Safety Report 6228030-8 (Version None)
Quarter: 2009Q2

REPORT INFORMATION
  Report Type: 
  Country: None (occurrence: None)
  Receive Date: 20090612
  Receipt Date: 20090604
  Transmission Date: 20091009
  Serious: Yes (Disabling, Other)
  Sender: FDA-Public Use
  Company Number: US-MERCK-0903USA01371

PATIENT
  Age: 60 Year
  Sex: Female

DRUGS (4)
  1. FOSAMAX [Suspect]
     Indication: OSTEOPOROSIS
     Route: 048
     Dates: start: 20030201, end: 20070201
  2. EVISTA [Concomitant]
     Indication: NEOPLASM MALIGNANT
     Route: 065
     Dates: start: 19960101
  3. EVISTA [Concomitant]
     Indication: OSTEOPENIA
     Route: 065
     Dates: start: 19960101
  4. PAXIL [Concomitant]
     Indication: DEPRESSION
     Route: 065
     Dates: start: 20001114

REACTIONS (6)
  - BRAIN NEOPLASM MALIGNANT [None]
  - EDENTULOUS [None]
  - JAW DISORDER [None]
  - OSTEONECROSIS [None]
  - OSTEORADIONECROSIS [None]
  - RENAL CELL CARCINOMA [None]
